FAERS Safety Report 20993444 (Version 1)
Quarter: 2022Q2

REPORT INFORMATION
  Report Type: Spontaneous
  Country: US (occurrence: None)
  Receive Date: 20220621
  Receipt Date: 20220621
  Transmission Date: 20220721
  Serious: Yes (Other)
  Sender: FDA-Public Use
  Company Number: None

PATIENT
  Age: 27 Year
  Sex: Female
  Weight: 65.25 kg

DRUGS (1)
  1. CHLORHEXIDINE GLUCONATE 0.12% ORAL RINSE [Suspect]
     Active Substance: CHLORHEXIDINE GLUCONATE
     Indication: Dental disorder prophylaxis
     Dosage: OTHER QUANTITY : 1 ML;?FREQUENCY : TWICE A DAY;?
     Route: 048
     Dates: start: 20220610, end: 20220620

REACTIONS (8)
  - Tongue coated [None]
  - Glossodynia [None]
  - Lip pain [None]
  - Gingival discolouration [None]
  - Stomatitis [None]
  - Paraesthesia oral [None]
  - Glossodynia [None]
  - Tongue discomfort [None]

NARRATIVE: CASE EVENT DATE: 20220620
